FAERS Safety Report 8587200-4 (Version None)
Quarter: 2012Q3

REPORT INFORMATION
  Report Type: 
  Country: None (occurrence: None)
  Receive Date: 20120810
  Receipt Date: 20120405
  Transmission Date: 20120928
  Serious: No
  Sender: FDA-Public Use
  Company Number: US-ASTRAZENECA-2011SE12764

PATIENT
  Age: 65 Year
  Sex: Female

DRUGS (3)
  1. ARIMIDEX [Suspect]
     Indication: BREAST CANCER
     Route: 048
     Dates: start: 20070101, end: 20100301
  2. ARIMIDEX [Suspect]
     Dosage: ANASTROZOLE GENERIC
     Route: 048
     Dates: start: 20101101
  3. ARIMIDEX [Suspect]
     Route: 048

REACTIONS (5)
  - ALOPECIA [None]
  - FATIGUE [None]
  - HOT FLUSH [None]
  - PAIN [None]
  - ARTHRALGIA [None]
